FAERS Safety Report 4448270-8 (Version None)
Quarter: 2004Q3

REPORT INFORMATION
  Report Type: 
  Country: None (occurrence: None)
  Receive Date: 20040910
  Receipt Date: 20040818
  Transmission Date: 20050211
  Serious: Yes (Death)
  Sender: FDA-Public Use
  Company Number: 238792

PATIENT
  Sex: Male

DRUGS (1)
  1. NOVOSEVEN [Suspect]
     Indication: HEPATIC TRAUMA
     Dosage: 100 UG/KG, SINGLE, INTRAVENOUS
     Route: 042
     Dates: start: 20040801, end: 20040801

REACTIONS (2)
  - CONCOMITANT DISEASE PROGRESSION [None]
  - PROCEDURAL COMPLICATION [None]
